FAERS Safety Report 11653115 (Version 3)
Quarter: 2016Q1

REPORT INFORMATION
  Report Type: Report from Study
  Country: US (occurrence: US)
  Receive Date: 20151022
  Receipt Date: 20160303
  Transmission Date: 20160525
  Serious: Yes (Hospitalization, Other)
  Sender: FDA-Public Use
  Company Number: US-ABBVIE-15K-163-1484253-00

PATIENT
  Age: 39 Year
  Sex: Female
  Weight: 87.62 kg

DRUGS (3)
  1. HUMIRA [Suspect]
     Active Substance: ADALIMUMAB
     Indication: RHEUMATOID ARTHRITIS
     Route: 058
     Dates: start: 201506
  2. VITAMIN D [Concomitant]
     Active Substance: CHOLECALCIFEROL
     Indication: PRODUCT USED FOR UNKNOWN INDICATION
  3. FOLIC ACID. [Concomitant]
     Active Substance: FOLIC ACID
     Indication: VITAMIN SUPPLEMENTATION

REACTIONS (5)
  - Pulmonary thrombosis [Unknown]
  - Pneumonia [Unknown]
  - Pain in extremity [Unknown]
  - Pulmonary embolism [Recovered/Resolved]
  - Osteonecrosis [Recovered/Resolved]

NARRATIVE: CASE EVENT DATE: 20151008
